FAERS Safety Report 9503350 (Version 3)
Quarter: 2013Q4

REPORT INFORMATION
  Report Type: Spontaneous
  Country: US (occurrence: None)
  Receive Date: 20130107
  Receipt Date: 20131226
  Transmission Date: 20140711
  Serious: Yes (Other)
  Sender: FDA-Public Use
  Company Number: PHEH2012US017598

PATIENT
  Age: 29 Year
  Sex: Female

DRUGS (1)
  1. GILENYA [Suspect]
     Indication: MULTIPLE SCLEROSIS
     Dosage: 0.5 MG, QD, ORAL
     Route: 048
     Dates: start: 20120907

REACTIONS (12)
  - Fungal infection [None]
  - Visual impairment [None]
  - Depression [None]
  - Headache [None]
  - Fatigue [None]
  - Crying [None]
  - Throat irritation [None]
  - Abdominal pain [None]
  - Dry eye [None]
  - Memory impairment [None]
  - Cognitive disorder [None]
  - Cough [None]
